FAERS Safety Report 11148508 (Version 2)
Quarter: 2016Q4

REPORT INFORMATION
  Report Type: Spontaneous
  Country: US (occurrence: US)
  Receive Date: 20150529
  Receipt Date: 20161108
  Transmission Date: 20170206
  Serious: Yes (Other)
  Sender: FDA-Public Use
  Company Number: US-ELI_LILLY_AND_COMPANY-US201505009558

PATIENT
  Sex: Female

DRUGS (10)
  1. CYMBALTA [Suspect]
     Active Substance: DULOXETINE HYDROCHLORIDE
     Dosage: 60 MG, QD
     Route: 048
     Dates: start: 20150220
  2. CYMBALTA [Suspect]
     Active Substance: DULOXETINE HYDROCHLORIDE
     Dosage: 150 MG, QD
     Route: 048
  3. LISINOPRIL AND HYDROCHLOROTHIAZIDE [Concomitant]
     Active Substance: HYDROCHLOROTHIAZIDE\LISINOPRIL
     Dosage: 1 DF, QD
     Route: 048
  4. PROAIR HFA [Concomitant]
     Active Substance: ALBUTEROL SULFATE
     Dosage: UNK, PRN
     Route: 055
  5. ALBUTEROL SULFATE. [Concomitant]
     Active Substance: ALBUTEROL SULFATE
     Dosage: UNK, PRN
     Route: 055
  6. CYMBALTA [Suspect]
     Active Substance: DULOXETINE HYDROCHLORIDE
     Dosage: 120 MG, QD
     Route: 048
     Dates: end: 20150220
  7. TRAZODONE [Concomitant]
     Active Substance: TRAZODONE HYDROCHLORIDE
     Dosage: UNK, PRN
     Route: 065
  8. AMITRIPTYLINE [Concomitant]
     Active Substance: AMITRIPTYLINE
     Dosage: 50 MG, QD
     Route: 048
  9. CYMBALTA [Suspect]
     Active Substance: DULOXETINE HYDROCHLORIDE
     Dosage: 30 MG, TID
     Route: 048
     Dates: start: 20120130
  10. CYMBALTA [Suspect]
     Active Substance: DULOXETINE HYDROCHLORIDE
     Indication: PRODUCT USED FOR UNKNOWN INDICATION
     Dosage: 60 MG, QD
     Route: 048
     Dates: end: 20120130

REACTIONS (21)
  - Paraesthesia [Unknown]
  - Nausea [Unknown]
  - Fatigue [Unknown]
  - Insomnia [Unknown]
  - Tremor [Unknown]
  - Drug withdrawal syndrome [Unknown]
  - Dizziness [Unknown]
  - Vomiting [Unknown]
  - Syncope [Unknown]
  - Affect lability [Unknown]
  - Amnesia [Unknown]
  - Confusional state [Unknown]
  - Sensory disturbance [Unknown]
  - Tinnitus [Unknown]
  - Dysphoria [Unknown]
  - Irritability [Unknown]
  - Suicidal ideation [Unknown]
  - Headache [Unknown]
  - Vertigo [Unknown]
  - Agitation [Unknown]
  - Lethargy [Unknown]
